FAERS Safety Report 4453935-8 (Version None)
Quarter: 2004Q3

REPORT INFORMATION
  Report Type: 
  Country: None (occurrence: None)
  Receive Date: 20040920
  Receipt Date: 20040907
  Transmission Date: 20050211
  Serious: Yes (Other)
  Sender: FDA-Public Use
  Company Number: PHEH2004US09635

PATIENT
  Age: 90 Year
  Sex: Female

DRUGS (4)
  1. AREDIA [Suspect]
     Indication: METASTASES TO BONE
     Dosage: 90 MG, QMO
     Dates: start: 20030626
  2. MEGACE [Concomitant]
  3. SYNTHROID [Concomitant]
  4. PREVACID [Concomitant]

REACTIONS (3)
  - BLOOD CREATININE INCREASED [None]
  - METABOLIC ACIDOSIS [None]
  - PCO2 DECREASED [None]
